FAERS Safety Report 4562324-7 (Version None)
Quarter: 2005Q1

REPORT INFORMATION
  Report Type: 
  Country: None (occurrence: None)
  Receive Date: 20050121
  Receipt Date: 20050114
  Transmission Date: 20050727
  Serious: Yes (Hospitalization, Other)
  Sender: FDA-Public Use
  Company Number: 2005014470

PATIENT
  Age: 77 Year
  Sex: Male
  Weight: 86.1834 kg

DRUGS (10)
  1. NITROGLYCERIN [Suspect]
     Indication: ANGINA PECTORIS
     Dosage: 0.4 MG PRN, SUBLINGUAL
     Route: 060
     Dates: start: 20031201
  2. FOLIC ACID [Concomitant]
  3. FUROSEMIDE [Concomitant]
  4. LISINOPRIL [Concomitant]
  5. PRAVASTATIN SODIUM [Concomitant]
  6. ATENOLOL [Concomitant]
  7. LORAZEPAM [Concomitant]
  8. PAROXETINE HYDROCHLORIDE [Concomitant]
  9. METHOXSALEN [Concomitant]
  10. DILTIAZEM HYDROCHLORIDE [Concomitant]

REACTIONS (2)
  - MYOCARDIAL INFARCTION [None]
  - PHARMACEUTICAL PRODUCT COMPLAINT [None]
